FAERS Safety Report 4609556-7 (Version None)
Quarter: 2005Q1

REPORT INFORMATION
  Report Type: 
  Country: None (occurrence: None)
  Receive Date: 20050314
  Receipt Date: 20050314
  Transmission Date: 20050727
  Serious: Yes (Hospitalization)
  Sender: FDA-Public Use
  Company Number: None

PATIENT
  Age: 50 Year
  Sex: Male

DRUGS (5)
  1. CLONIDINE [Suspect]
     Indication: HYPERTENSION
     Dosage: 0.3 MG TID
     Dates: start: 20021101
  2. LORTAB [Concomitant]
  3. HYDROCHLOROTHIAZIDE [Concomitant]
  4. GUAIFENESIN [Concomitant]
  5. METHOCARBAMOL [Concomitant]

REACTIONS (2)
  - BUNDLE BRANCH BLOCK LEFT [None]
  - SINUS BRADYCARDIA [None]
